FAERS Safety Report 8879582 (Version 1)
Quarter: 2012Q4

REPORT INFORMATION
  Report Type: 
  Country: PL (occurrence: PL)
  Receive Date: 20121101
  Receipt Date: 20121101
  Transmission Date: 20130627
  Serious: Yes (Death)
  Sender: FDA-Public Use
  Company Number: PL-BAYER-2012-101422

PATIENT
  Age: 56 Year
  Sex: Male
  Weight: 112 kg

DRUGS (1)
  1. ULTRAVIST [Suspect]
     Indication: RECTAL CANCER
     Dosage: 110 ml, ONCE
     Route: 042
     Dates: start: 20120926, end: 20120926

REACTIONS (3)
  - Cardiovascular disorder [Fatal]
  - Cyanosis [Fatal]
  - Convulsion [Fatal]
